FAERS Safety Report 25995232 (Version 1)
Quarter: 2025Q4

REPORT INFORMATION
  Report Type: Spontaneous
  Country: TR (occurrence: TR)
  Receive Date: 20251104
  Receipt Date: 20251104
  Transmission Date: 20260117
  Serious: Yes (Death, Other)
  Sender: AMGEN
  Company Number: TR-AMGEN-TURSP2025214834

PATIENT

DRUGS (1)
  1. FILGRASTIM [Suspect]
     Active Substance: FILGRASTIM
     Indication: Autologous haematopoietic stem cell transplant
     Dosage: 10 MICROGRAM/KILOGRAM, QD
     Route: 065

REACTIONS (17)
  - Hodgkin^s disease [Fatal]
  - Graft versus host disease [Fatal]
  - Engraft failure [Unknown]
  - Hodgkin^s disease recurrent [Unknown]
  - Febrile neutropenia [Unknown]
  - Neutropenia [Unknown]
  - Atrial fibrillation [Unknown]
  - Thrombocytopenia [Unknown]
  - Mucosal inflammation [Unknown]
  - Hepatotoxicity [Unknown]
  - Tumour lysis syndrome [Unknown]
  - Neuropathy peripheral [Unknown]
  - Anaemia [Unknown]
  - Diarrhoea [Unknown]
  - Constipation [Unknown]
  - Vomiting [Unknown]
  - Nausea [Unknown]
